FAERS Safety Report 6039682-X (Version None)
Quarter: 2009Q1

REPORT INFORMATION
  Report Type: 
  Country: None (occurrence: None)
  Receive Date: 20090116
  Receipt Date: 20080102
  Transmission Date: 20090719
  Serious: No
  Sender: FDA-Public Use
  Company Number: US-KINGPHARMUSA00001-K200800009

PATIENT
  Sex: Male

DRUGS (1)
  1. CORGARD [Suspect]

REACTIONS (3)
  - ASTHENIA [None]
  - FATIGUE [None]
  - HEART RATE DECREASED [None]
